FAERS Safety Report 7569274-2 (Version None)
Quarter: 2011Q2

REPORT INFORMATION
  Report Type: 
  Country: None (occurrence: None)
  Receive Date: 20110623
  Receipt Date: 20110620
  Transmission Date: 20111010
  Serious: Yes (Death, Hospitalization)
  Sender: FDA-Public Use
  Company Number: PHHY2011US53553

PATIENT
  Sex: Male

DRUGS (1)
  1. EXJADE [Suspect]
     Dosage: 1500 MG, QD
     Route: 048

REACTIONS (8)
  - SEPSIS [None]
  - ASTHENIA [None]
  - DEATH [None]
  - DEHYDRATION [None]
  - LETHARGY [None]
  - OEDEMA [None]
  - HYPOTENSION [None]
  - ACUTE MYELOID LEUKAEMIA [None]
